FAERS Safety Report 14774289 (Version 6)
Quarter: 2023Q1

REPORT INFORMATION
  Report Type: Report from Study
  Country: None (occurrence: CA)
  Receive Date: 20180418
  Receipt Date: 20230116
  Transmission Date: 20230418
  Serious: Yes (Other)
  Sender: FDA-Public Use
  Company Number: CA-ASCEND THERAPEUTICS-2045944

PATIENT
  Age: 56 Year
  Sex: Female

DRUGS (10)
  1. ESTROGEL [Suspect]
     Active Substance: ESTRADIOL
     Indication: Product used for unknown indication
     Route: 062
  2. PROMETRIUM [Suspect]
     Active Substance: PROGESTERONE
     Route: 048
  3. PROMETRIUM [Suspect]
     Active Substance: PROGESTERONE
     Route: 048
     Dates: start: 2017
  4. ESTROGEL [Suspect]
     Active Substance: ESTRADIOL
     Route: 062
  5. PROMETRIUM [Suspect]
     Active Substance: PROGESTERONE
     Route: 048
     Dates: start: 202012, end: 202103
  6. PROMETRIUM [Suspect]
     Active Substance: PROGESTERONE
     Route: 048
     Dates: start: 202103
  7. ESTROGEL [Suspect]
     Active Substance: ESTRADIOL
     Route: 062
  8. ESTROGEL [Suspect]
     Active Substance: ESTRADIOL
     Route: 062
     Dates: start: 2017
  9. ESTROGEL [Suspect]
     Active Substance: ESTRADIOL
     Route: 062
     Dates: start: 202106
  10. ESTROGEL [Suspect]
     Active Substance: ESTRADIOL
     Route: 062

REACTIONS (15)
  - Shoulder operation [Recovered/Resolved]
  - Neck pain [Recovered/Resolved]
  - Malaise [Recovered/Resolved]
  - Intervertebral disc degeneration [Recovered/Resolved]
  - Back pain [Recovered/Resolved]
  - Back pain [Recovered/Resolved]
  - Osteoarthritis [Recovered/Resolved]
  - Osteoarthritis [Recovered/Resolved]
  - Off label use [Recovered/Resolved]
  - Rheumatoid arthritis [Recovering/Resolving]
  - Pain in extremity [Recovering/Resolving]
  - Blister [Recovering/Resolving]
  - Rash [Recovered/Resolved]
  - Treatment noncompliance [Recovered/Resolved]
  - Malaise [Recovered/Resolved]

NARRATIVE: CASE EVENT DATE: 20200101
